FAERS Safety Report 19290157 (Version 1)
Quarter: 2021Q2

REPORT INFORMATION
  Report Type: Spontaneous
  Country: US (occurrence: US)
  Receive Date: 20210521
  Receipt Date: 20210521
  Transmission Date: 20210717
  Serious: No
  Sender: FDA-Public Use
  Company Number: US-RADIUS HEALTH INC.-2021US000413

PATIENT
  Age: 55 Year
  Sex: Female

DRUGS (2)
  1. TYMLOS [Suspect]
     Active Substance: ABALOPARATIDE
     Indication: OSTEOPOROSIS
     Dosage: ONE DOSE DAILY
     Route: 058
     Dates: start: 202011
  2. METFORMIN [Concomitant]
     Active Substance: METFORMIN HYDROCHLORIDE
     Indication: DIABETES MELLITUS
     Dosage: UNK

REACTIONS (6)
  - Miliaria [Not Recovered/Not Resolved]
  - Dry skin [Not Recovered/Not Resolved]
  - Product administered at inappropriate site [Unknown]
  - Acne [Not Recovered/Not Resolved]
  - Depressed mood [Not Recovered/Not Resolved]
  - Fat tissue increased [Unknown]

NARRATIVE: CASE EVENT DATE: 202012
